FAERS Safety Report 24318929 (Version 1)
Quarter: 2024Q3

REPORT INFORMATION
  Report Type: Spontaneous
  Country: GB (occurrence: None)
  Receive Date: 20240913
  Receipt Date: 20240913
  Transmission Date: 20241017
  Serious: Yes (Life-Threatening, Hospitalization)
  Sender: ASTRAZENECA
  Company Number: 2024A197613

PATIENT
  Sex: Male

DRUGS (1)
  1. TEZSPIRE [Suspect]
     Active Substance: TEZEPELUMAB-EKKO

REACTIONS (6)
  - Viral infection [Unknown]
  - Respiratory arrest [Unknown]
  - Blood blister [Unknown]
  - Blister rupture [Unknown]
  - Cough [Unknown]
  - Skin discolouration [Unknown]
